FAERS Safety Report 12589279 (Version 1)
Quarter: 2016Q3

REPORT INFORMATION
  Report Type: Spontaneous
  Country: US (occurrence: US)
  Receive Date: 20160725
  Receipt Date: 20160725
  Transmission Date: 20161109
  Serious: No
  Sender: FDA-Public Use
  Company Number: US-JNJFOC-20160609213

PATIENT
  Age: 45 Year
  Sex: Female

DRUGS (2)
  1. MOTRIN IB [Suspect]
     Active Substance: IBUPROFEN
     Indication: HEADACHE
     Dosage: 2 TABLETS WHEN NEEDED, ABOUT 3 TIMES A DAY
     Route: 048
  2. MOTRIN IB [Suspect]
     Active Substance: IBUPROFEN
     Indication: SINUS HEADACHE
     Dosage: 2 TABLETS WHEN NEEDED, ABOUT 3 TIMES A DAY
     Route: 048

REACTIONS (2)
  - Therapeutic response decreased [Unknown]
  - Dyspepsia [Not Recovered/Not Resolved]
